FAERS Safety Report 10074706 (Version 2)
Quarter: 2014Q2

REPORT INFORMATION
  Report Type: Spontaneous
  Country: DE (occurrence: DE)
  Receive Date: 20140414
  Receipt Date: 20140501
  Transmission Date: 20141212
  Serious: Yes (Other)
  Sender: FDA-Public Use
  Company Number: DE-ROCHE-1382638

PATIENT
  Age: 41 Year
  Sex: Female
  Weight: 74 kg

DRUGS (1)
  1. KADCYLA [Suspect]
     Indication: BREAST CANCER METASTATIC
     Route: 042
     Dates: start: 20140227

REACTIONS (1)
  - Hypermetropia [Not Recovered/Not Resolved]
